FAERS Safety Report 23052124 (Version 1)
Quarter: 2023Q4

REPORT INFORMATION
  Report Type: Spontaneous
  Country: IT (occurrence: IT)
  Receive Date: 20231010
  Receipt Date: 20231010
  Transmission Date: 20240109
  Serious: Yes (Other)
  Sender: FDA-Public Use
  Company Number: None

PATIENT
  Age: 71 Year
  Sex: Female

DRUGS (11)
  1. OBINUTUZUMAB [Suspect]
     Active Substance: OBINUTUZUMAB
     Indication: Chronic lymphocytic leukaemia
     Dosage: CYCLE 1: DAY 3 ADMINISTERED IN SF 250 CC AT 10 AM
     Route: 042
     Dates: start: 20230905, end: 20230905
  2. OBINUTUZUMAB [Suspect]
     Active Substance: OBINUTUZUMAB
     Dosage: CYCLE 1: DAY 2 ADMINISTERED IN SF 500 CC AT 10 AM
     Route: 042
     Dates: start: 20230829, end: 20230829
  3. OBINUTUZUMAB [Suspect]
     Active Substance: OBINUTUZUMAB
     Dosage: ADMINISTERED IN PHYSIOLOGICAL SOLUTION 250 ML AT 10AM
     Route: 042
     Dates: start: 20230911, end: 20230911
  4. OBINUTUZUMAB [Suspect]
     Active Substance: OBINUTUZUMAB
     Dosage: CYCLE 1: DAY 1 SM SUSP ADMINISTERED IN SF 100 CC AT 10:00
     Route: 042
     Dates: start: 20230828, end: 20230828
  5. OMEPRAZOLE [Concomitant]
     Active Substance: OMEPRAZOLE
     Indication: Prophylaxis against gastrointestinal ulcer
     Dosage: SOMMINISTRATA IN SOLUZIONE NACL 0,9% 100 CC IN 10 MINUTI, 1 ORA PRIMA DELLA SOMMINISTRAZIONE DELLA S
     Dates: start: 2023
  6. SODIUM CHLORIDE [Concomitant]
     Active Substance: SODIUM CHLORIDE
  7. METHYLPREDNISOLONE [Concomitant]
     Active Substance: METHYLPREDNISOLONE
     Indication: Anaphylaxis prophylaxis
     Dosage: SOMMINISTRATO IN BOLO UN^ORA PRIMA DELLA SOMMINISTRAZIONE DELLA SM SOSP.
     Dates: start: 2023
  8. ALLOPURINOL [Concomitant]
     Active Substance: ALLOPURINOL
     Indication: Blood uric acid increased
  9. CHLORPHENIRAMINE MALEATE [Concomitant]
     Active Substance: CHLORPHENIRAMINE MALEATE
     Indication: Anaphylaxis prophylaxis
     Dosage: SOMMINISTRATO IN NACL 0.9% 100 CC IN 15 MINUTI, 30 MINUTI PRIMA DELLA SOMMINISTRAZIONE DELLA SM SOSP
     Dates: start: 2023
  10. ACETAMINOPHEN [Concomitant]
     Active Substance: ACETAMINOPHEN
     Dosage: 1 CP PER OS, 30 MINUTI PRIMA DELLA SOMMINISTRAZIONE DELL^INFUSIONE DI SM SOSP
     Dates: start: 2023
  11. FUROSEMIDE [Concomitant]
     Active Substance: FUROSEMIDE

REACTIONS (1)
  - Hypertransaminasaemia [Recovered/Resolved]

NARRATIVE: CASE EVENT DATE: 20230828
